FAERS Safety Report 5306288-7 (Version None)
Quarter: 2007Q2

REPORT INFORMATION
  Report Type: 
  Country: None (occurrence: None)
  Receive Date: 20070424
  Receipt Date: 20070410
  Transmission Date: 20071010
  Serious: No
  Sender: FDA-Public Use
  Company Number: HU-ELI_LILLY_AND_COMPANY-HU200704001894

PATIENT
  Age: 47 Year
  Sex: Male

DRUGS (1)
  1. TADALAFIL [Suspect]
     Dosage: 10 MG, AS NEEDED
     Route: 048
     Dates: start: 20070322

REACTIONS (2)
  - CATARACT [None]
  - VISUAL ACUITY REDUCED [None]
